FAERS Safety Report 12333943 (Version 2)
Quarter: 2016Q2

REPORT INFORMATION
  Report Type: Spontaneous
  Country: US (occurrence: US)
  Receive Date: 20160504
  Receipt Date: 20160524
  Transmission Date: 20160815
  Serious: Yes (Other)
  Sender: FDA-Public Use
  Company Number: US-ALLERGAN-1655520US

PATIENT
  Age: 58 Year
  Sex: Female

DRUGS (1)
  1. RESTASIS [Suspect]
     Active Substance: CYCLOSPORINE
     Indication: KERATITIS
     Dosage: UNK, BID
     Route: 047
     Dates: start: 20140623

REACTIONS (4)
  - Wrong technique in product usage process [Unknown]
  - Eye pain [Recovered/Resolved]
  - Keratitis [Recovered/Resolved]
  - Ocular hyperaemia [Recovered/Resolved]

NARRATIVE: CASE EVENT DATE: 20160409
